FAERS Safety Report 20321941 (Version 1)
Quarter: 2022Q1

REPORT INFORMATION
  Report Type: Spontaneous
  Country: PL (occurrence: PL)
  Receive Date: 20220111
  Receipt Date: 20220111
  Transmission Date: 20220423
  Serious: Yes (Hospitalization)
  Sender: FDA-Public Use
  Company Number: PL-CELGENE-POL-20210803269

PATIENT
  Age: 72 Year
  Sex: Male
  Weight: 79 kg

DRUGS (13)
  1. AZACITIDINE [Suspect]
     Active Substance: AZACITIDINE
     Indication: Myelodysplastic syndrome
     Dosage: 75 MILLIGRAM/SQ. METER, ON 7 DAYS WITHIN THE FIRST 9 CALENDAR
     Route: 058
     Dates: start: 20210728, end: 20210801
  2. AZACITIDINE [Suspect]
     Active Substance: AZACITIDINE
     Dosage: ON 7 DAYS WITHIN FIRST 9 CALENDAR/30-AUG-2021
     Route: 058
     Dates: end: 20210907
  3. VENETOCLAX [Suspect]
     Active Substance: VENETOCLAX
     Indication: Gastritis
     Dosage: 40 MILLIGRAM, QD
     Route: 048
     Dates: start: 20210728, end: 20210801
  4. VENETOCLAX [Suspect]
     Active Substance: VENETOCLAX
     Indication: Myelodysplastic syndrome
     Dosage: 40 MILLIGRAM, QD/30-AUG-2021
     Route: 048
     Dates: end: 20210912
  5. METFORMIN HYDROCHLORIDE [Concomitant]
     Active Substance: METFORMIN HYDROCHLORIDE
     Indication: Diabetes mellitus
     Dosage: 2550 MILLIGRAM, QD
     Route: 048
     Dates: start: 202104
  6. METFORMIN HYDROCHLORIDE [Concomitant]
     Active Substance: METFORMIN HYDROCHLORIDE
     Dosage: 2550 MILLIGRAM, QD
     Route: 048
     Dates: start: 2020
  7. METFORMIN HYDROCHLORIDE [Concomitant]
     Active Substance: METFORMIN HYDROCHLORIDE
     Dosage: 2550 MILLIGRAM, QD
     Route: 048
     Dates: start: 2020
  8. TORAMIDE [Concomitant]
     Indication: Hypertension
     Dosage: 2.5 MILLIGRAM, QD, (2.5 MILLIGRAM)
     Route: 048
     Dates: start: 2020
  9. Atossa [Concomitant]
     Indication: Prophylaxis of nausea and vomiting
     Dosage: 8 MILLIGRAM, QD, (8 MILLIGRAM)
     Route: 048
     Dates: start: 20210728, end: 20210802
  10. TEXIBAX [Concomitant]
     Indication: Gastritis
     Dosage: 20 MILLIGRAM, QD
     Route: 048
     Dates: start: 2020
  11. TEXIBAX [Concomitant]
     Indication: Myelodysplastic syndrome
  12. BISOPROLOL [Concomitant]
     Active Substance: BISOPROLOL
     Indication: Hypertension
     Dosage: 5 MILLIGRAM, QD, 5 MILLIGRAM
     Route: 048
     Dates: start: 2020
  13. PERINDOPRIL [Concomitant]
     Active Substance: PERINDOPRIL
     Indication: Hypertension
     Dosage: 5 MILLIGRAM, QD
     Route: 048
     Dates: start: 2020

REACTIONS (2)
  - Tumour lysis syndrome [Recovered/Resolved]
  - Chronic kidney disease [Recovered/Resolved]

NARRATIVE: CASE EVENT DATE: 20210802
